FAERS Safety Report 16793962 (Version 1)
Quarter: 2019Q3

REPORT INFORMATION
  Report Type: Report from Study
  Country: ZA (occurrence: ZA)
  Receive Date: 20190911
  Receipt Date: 20190911
  Transmission Date: 20191005
  Serious: Yes (Death, Other)
  Sender: FDA-Public Use
  Company Number: ZA-ROCHE-2401162

PATIENT
  Sex: Male

DRUGS (1)
  1. ALTEPLASE. [Suspect]
     Active Substance: ALTEPLASE
     Indication: PERICARDIAL EFFUSION
     Route: 042
     Dates: start: 20190723, end: 20190723

REACTIONS (5)
  - Sepsis [Unknown]
  - Deep vein thrombosis [Unknown]
  - HIV test positive [Unknown]
  - Death [Fatal]
  - Acute kidney injury [Unknown]

NARRATIVE: CASE EVENT DATE: 20190728
